FAERS Safety Report 5505838-5 (Version None)
Quarter: 2007Q4

REPORT INFORMATION
  Report Type: 
  Country: None (occurrence: None)
  Receive Date: 20071102
  Receipt Date: 20071025
  Transmission Date: 20080405
  Serious: Yes (Other)
  Sender: FDA-Public Use
  Company Number: PHFR2007GB03157

PATIENT
  Age: 66 Year
  Sex: Female

DRUGS (2)
  1. GLIVEC [Suspect]
     Dosage: 400MG
     Dates: start: 20040521
  2. INTERFERON [Suspect]
     Dosage: 5MU
     Dates: start: 19970107, end: 20040521

REACTIONS (17)
  - AMNESIA [None]
  - ARTHRALGIA [None]
  - CLUSTER HEADACHE [None]
  - CONJUNCTIVAL HAEMORRHAGE [None]
  - EYE SWELLING [None]
  - FAECAL INCONTINENCE [None]
  - GASTRIC DISORDER [None]
  - MUSCLE SPASMS [None]
  - OEDEMA PERIPHERAL [None]
  - ORTHOSTATIC HYPOTENSION [None]
  - PHARYNGOLARYNGEAL PAIN [None]
  - POOR QUALITY SLEEP [None]
  - RESTLESS LEGS SYNDROME [None]
  - URINARY INCONTINENCE [None]
  - VERTIGO [None]
  - VOMITING [None]
  - WEIGHT INCREASED [None]
